FAERS Safety Report 5805687-4 (Version None)
Quarter: 2008Q3

REPORT INFORMATION
  Report Type: 
  Country: None (occurrence: None)
  Receive Date: 20080710
  Receipt Date: 20080611
  Transmission Date: 20090109
  Serious: No
  Sender: FDA-Public Use
  Company Number: A0732451A

PATIENT
  Age: 70 Year
  Sex: Female

DRUGS (5)
  1. TYKERB [Suspect]
     Indication: BREAST CANCER
     Dosage: 1250MG PER DAY
     Route: 048
  2. METFORMIN [Concomitant]
  3. GLIMEPIRIDE [Concomitant]
  4. TRIAMTERENE AND HYDROCHLOROTHIAZIDE [Concomitant]
  5. VITAMIN TAB [Concomitant]

REACTIONS (2)
  - LOCAL SWELLING [None]
  - RASH PRURITIC [None]
